FAERS Safety Report 8954283 (Version 2)
Quarter: 2013Q2

REPORT INFORMATION
  Report Type: Report from Study
  Country: DE (occurrence: DE)
  Receive Date: 20121207
  Receipt Date: 20130425
  Transmission Date: 20140414
  Serious: Yes (Hospitalization, Other)
  Sender: FDA-Public Use
  Company Number: DE-009507513-1212DEU000717

PATIENT
  Age: 70 Year
  Sex: Male
  Weight: 91.3 kg

DRUGS (3)
  1. EZETIMIBE (+) SIMVASTATIN [Suspect]
     Indication: ACUTE CORONARY SYNDROME
     Dosage: UNK
     Route: 048
     Dates: start: 20090715
  2. ASPIRIN [Concomitant]
     Dosage: 100 MG, DAILY
     Route: 048
     Dates: start: 20090716
  3. LISINOPRIL [Concomitant]
     Dosage: 5 MG, DAILY
     Route: 048
     Dates: start: 20090710

REACTIONS (1)
  - Tendon rupture [Recovered/Resolved]
